APPROVED DRUG PRODUCT: EVEKEO ODT
Active Ingredient: AMPHETAMINE SULFATE
Strength: 2.5MG **Federal Register determination that product was not discontinued or withdrawn for safety or effectiveness reasons**
Dosage Form/Route: TABLET, ORALLY DISINTEGRATING;ORAL
Application: N209905 | Product #005
Applicant: AZURITY PHARMACEUTICALS INC
Approved: Apr 16, 2021 | RLD: Yes | RS: No | Type: DISCN

PATENTS:
Patent 10441554 | Expires: Mar 10, 2037
Patent 11160772 | Expires: Mar 10, 2037